FAERS Safety Report 14314928 (Version 3)
Quarter: 2018Q1

REPORT INFORMATION
  Report Type: Spontaneous
  Country: JP (occurrence: JP)
  Receive Date: 20171221
  Receipt Date: 20180221
  Transmission Date: 20180509
  Serious: Yes (Hospitalization)
  Sender: FDA-Public Use
  Company Number: JP-ELI_LILLY_AND_COMPANY-JP201712007978

PATIENT
  Age: 42 Year
  Sex: Male

DRUGS (4)
  1. CYRAMZA [Suspect]
     Active Substance: RAMUCIRUMAB
     Indication: COLON CANCER
     Dosage: 8 MG/KG, OTHER
     Route: 041
     Dates: start: 20170905, end: 20171030
  2. IRINOTECAN [Concomitant]
     Active Substance: IRINOTECAN
     Indication: COLON CANCER
     Dosage: 160 MG/M2, OTHER
     Route: 041
     Dates: start: 20170905
  3. FLUOROURACIL. [Concomitant]
     Active Substance: FLUOROURACIL
     Indication: COLON CANCER
     Dosage: 3500 MG, OTHER
     Route: 041
     Dates: start: 20170905
  4. LEVOFOLINATE                       /06682103/ [Concomitant]
     Active Substance: LEVOLEUCOVORIN CALCIUM
     Indication: COLON CANCER
     Dosage: 275 MG/M2, OTHER
     Route: 041
     Dates: start: 20170905

REACTIONS (1)
  - Anastomotic ulcer haemorrhage [Recovered/Resolved]

NARRATIVE: CASE EVENT DATE: 20171031
